FAERS Safety Report 24814633 (Version 1)
Quarter: 2025Q1

REPORT INFORMATION
  Report Type: Spontaneous
  Country: FR (occurrence: FR)
  Receive Date: 20250107
  Receipt Date: 20250107
  Transmission Date: 20250409
  Serious: Yes (Hospitalization)
  Sender: AMERICAN REGENT
  Company Number: FR-AMERICAN REGENT INC-2024004937

PATIENT
  Age: 2 Year
  Sex: Male
  Weight: 10 kg

DRUGS (1)
  1. VENOFER [Suspect]
     Active Substance: IRON SUCROSE
     Indication: Nephrogenic anaemia
     Route: 042
     Dates: start: 20240329, end: 20240329

REACTIONS (7)
  - Blood iron increased [Recovered/Resolved]
  - Wrong product administered [Recovered/Resolved]
  - Incorrect dose administered [Recovered/Resolved]
  - Vomiting [Unknown]
  - Catheter site pain [Unknown]
  - Overdose [Unknown]
  - Off label use [Unknown]

NARRATIVE: CASE EVENT DATE: 20240329
